FAERS Safety Report 6130283-1 (Version None)
Quarter: 2009Q1

REPORT INFORMATION
  Report Type: 
  Country: None (occurrence: None)
  Receive Date: 20090324
  Receipt Date: 20090319
  Transmission Date: 20090719
  Serious: Yes (Life-Threatening, Hospitalization, Other)
  Sender: FDA-Public Use
  Company Number: PHHY2009DE10518

PATIENT
  Age: 71 Year
  Sex: Female
  Weight: 80 kg

DRUGS (14)
  1. DIOVAN [Interacting]
     Indication: HYPERTENSION
     Dosage: UNK
     Dates: start: 20050101
  2. DIOVAN [Interacting]
     Dosage: 240 MG/DAY
     Route: 048
     Dates: start: 20081019
  3. BELOC-ZOC FORTE [Interacting]
     Indication: HYPERTENSION
     Dosage: UNK
     Dates: start: 20050101
  4. BELOC-ZOC FORTE [Interacting]
     Dosage: 75 MG/DAY
     Route: 048
  5. TOREM [Interacting]
     Indication: HYPERTENSION
     Dosage: UNK
     Route: 048
     Dates: start: 20050101
  6. TOREM [Interacting]
     Dosage: 10 MG/DAY
     Route: 048
  7. CYNT ^BEIERSDORF^ [Interacting]
     Indication: HYPERTENSION
     Dosage: 0.3 MG (1 IN DAY)
     Route: 048
     Dates: start: 20050101
  8. CYNT ^BEIERSDORF^ [Interacting]
     Dosage: 0.3 MG, BID
     Route: 048
  9. CALCIUM ACETATE [Suspect]
     Indication: OSTEOPOROSIS PROPHYLAXIS
     Dosage: 1(1400 MG) IN A DAY
     Route: 048
     Dates: start: 20081017
  10. ACTRAPID HUMAN [Concomitant]
     Indication: TYPE 2 DIABETES MELLITUS
     Dosage: 2 (25 IU) IN A DAY
     Route: 058
     Dates: start: 20050101
  11. ALLOPURINOL [Concomitant]
  12. ASS ^CT-ARZNEIMITTEL^ [Concomitant]
     Indication: PROPHYLAXIS
     Dosage: 1 IN A DAY
     Route: 048
     Dates: start: 20050101
  13. FLUVASTATIN [Concomitant]
     Indication: HYPERLIPIDAEMIA
     Dosage: 1 (40 MG) IN A DAY
     Route: 048
     Dates: start: 20050101
  14. PROTAPHANE MC [Concomitant]
     Indication: TYPE 2 DIABETES MELLITUS
     Dosage: 1 (30 IU) IN A DAY
     Route: 058

REACTIONS (17)
  - ASPARTATE AMINOTRANSFERASE INCREASED [None]
  - ASTHENIA [None]
  - BLOOD CREATININE INCREASED [None]
  - BLOOD PRESSURE DECREASED [None]
  - BLOOD PRESSURE FLUCTUATION [None]
  - BLOOD UREA INCREASED [None]
  - C-REACTIVE PROTEIN INCREASED [None]
  - CIRCULATORY COLLAPSE [None]
  - COUGH [None]
  - DIZZINESS [None]
  - FALL [None]
  - HAEMODIALYSIS [None]
  - HYPERCALCAEMIA [None]
  - HYPERKALAEMIA [None]
  - HYPERTENSIVE HEART DISEASE [None]
  - MUSCULAR WEAKNESS [None]
  - PYREXIA [None]
